FAERS Safety Report 6637799-X (Version None)
Quarter: 2010Q1

REPORT INFORMATION
  Report Type: 
  Country: None (occurrence: None)
  Receive Date: 20100315
  Receipt Date: 20100315
  Transmission Date: 20100710
  Serious: Yes (Hospitalization, Disabling)
  Sender: FDA-Public Use
  Company Number: None

PATIENT
  Age: 53 Year
  Sex: Male
  Weight: 76.2043 kg

DRUGS (2)
  1. SIMVASTATIN [Suspect]
     Indication: BLOOD CHOLESTEROL
     Dosage: ONE TABLET AT BEDTIME DAILY PO
     Route: 048
     Dates: start: 20081001, end: 20100101
  2. SIMVASTATIN [Suspect]
     Indication: LOW DENSITY LIPOPROTEIN
     Dosage: ONE TABLET AT BEDTIME DAILY PO
     Route: 048
     Dates: start: 20081001, end: 20100101

REACTIONS (3)
  - PRURITUS [None]
  - RASH [None]
  - URTICARIA [None]
